FAERS Safety Report 5194502-0 (Version None)
Quarter: 2006Q4

REPORT INFORMATION
  Report Type: 
  Country: None (occurrence: None)
  Receive Date: 20061226
  Receipt Date: 20061214
  Transmission Date: 20070319
  Serious: Yes (Other)
  Sender: FDA-Public Use
  Company Number: S06-FRA-03985-01

PATIENT
  Age: 82 Year
  Sex: Female
  Weight: 52.2 kg

DRUGS (8)
  1. CITALOPRAM HYDROBROMIDE [Suspect]
     Indication: DEPRESSION
     Dosage: 0.7 ML QD PO
     Route: 048
     Dates: start: 20060701
  2. FOSAMAX [Suspect]
     Indication: OSTEOPOROSIS
     Dosage: 70 MG QW PO
     Route: 048
     Dates: start: 20060913
  3. DAFLON (DIOSMIN) [Suspect]
     Indication: VENOUS INSUFFICIENCY
     Dosage: 1500 MG QD
  4. INEXIUM (ESOMEPRAZOLE) [Suspect]
     Indication: ABDOMINAL PAIN UPPER
     Dosage: 20 MG QD PO
     Route: 048
  5. SANDOCAL (CALCIUM GLUBIONATE) [Suspect]
     Dosage: 1 QD
  6. RISPERDAL [Concomitant]
  7. ATARAX [Concomitant]
  8. ZOLPIDEM TARTRATE [Concomitant]

REACTIONS (5)
  - AGITATION [None]
  - CONDITION AGGRAVATED [None]
  - DEPRESSION [None]
  - DRUG INTERACTION [None]
  - SOCIAL AVOIDANT BEHAVIOUR [None]
